FAERS Safety Report 4532207-7 (Version None)
Quarter: 2004Q4

REPORT INFORMATION
  Report Type: 
  Country: None (occurrence: None)
  Receive Date: 20041217
  Receipt Date: 20041206
  Transmission Date: 20050328
  Serious: Yes (Hospitalization)
  Sender: FDA-Public Use
  Company Number: 2004084839

PATIENT
  Age: 65 Year
  Sex: Male
  Weight: 72 kg

DRUGS (9)
  1. NITROGLYCERIN [Suspect]
     Indication: CARDIOMYOPATHY
     Dosage: 15 MG (15 MG, 1 IN 1 D), TRANSDERMAL
     Route: 062
  2. ISOSORBIDE MONONITRATE [Suspect]
     Indication: CARDIOMYOPATHY
     Dosage: 80 MG (40 MG, 2 IN 1 D), ORAL
     Route: 048
  3. ATENOLOL [Suspect]
     Indication: CARDIOMYOPATHY
     Dosage: 50 MG (50 MG, 1 IN 1 D), ORAL
     Route: 048
  4. DILTIAZEM [Suspect]
     Indication: CARDIOMYOPATHY
     Dosage: 120 MG (120 MG, 1 IN 1 D), ORAL
     Route: 048
     Dates: start: 20020101, end: 20040819
  5. CLOPIDOGREL BISULFATE [Concomitant]
  6. ACETYLSALICYLIC ACID (ACETYLSALICYLIC ACID) [Concomitant]
  7. ATORVASTATIN CALCIUM [Concomitant]
  8. OMEPRAZOLE [Concomitant]
  9. INSULIN ASPART (INSULIN ASPART) [Concomitant]

REACTIONS (2)
  - BRADYCARDIA [None]
  - HYPOTENSION [None]
